FAERS Safety Report 21314089 (Version 1)
Quarter: 2022Q3

REPORT INFORMATION
  Report Type: Report from Study
  Country: US (occurrence: US)
  Receive Date: 20220909
  Receipt Date: 20220909
  Transmission Date: 20221026
  Serious: Yes (Other)
  Sender: FDA-Public Use
  Company Number: US-ABBVIE-22K-163-4532221-00

PATIENT
  Sex: Male

DRUGS (1)
  1. IMBRUVICA [Suspect]
     Active Substance: IBRUTINIB
     Indication: Chronic lymphocytic leukaemia
     Route: 048

REACTIONS (8)
  - Vascular graft [Unknown]
  - Gastric disorder [Unknown]
  - Sciatica [Unknown]
  - Arthritis [Unknown]
  - Diverticulum [Unknown]
  - Flatulence [Unknown]
  - Diverticulitis [Unknown]
  - Pain [Unknown]

NARRATIVE: CASE EVENT DATE: 20140101
